FAERS Safety Report 5706266-X (Version None)
Quarter: 2008Q2

REPORT INFORMATION
  Report Type: 
  Country: None (occurrence: None)
  Receive Date: 20080415
  Receipt Date: 20080408
  Transmission Date: 20081010
  Serious: Yes (Hospitalization, Other)
  Sender: FDA-Public Use
  Company Number: US-GENENTECH-255645

PATIENT
  Sex: Male
  Weight: 94.785 kg

DRUGS (20)
  1. XOLAIR [Suspect]
     Indication: ASTHMA
     Dosage: 150 MG, SINGLE
     Route: 058
     Dates: start: 20050628, end: 20070213
  2. XOLAIR [Suspect]
     Indication: RHINITIS ALLERGIC
     Dosage: 375 MG, Q2W
     Route: 058
  3. ALBUTEROL SULFATE [Concomitant]
     Indication: DRUG USE FOR UNKNOWN INDICATION
  4. ALLOPURINOL [Concomitant]
     Indication: DRUG USE FOR UNKNOWN INDICATION
  5. ALTOCOR [Concomitant]
     Indication: DRUG USE FOR UNKNOWN INDICATION
  6. BONIVA [Concomitant]
     Indication: DRUG USE FOR UNKNOWN INDICATION
  7. BUMETANIDE [Concomitant]
     Indication: DRUG USE FOR UNKNOWN INDICATION
  8. DIGITEK [Concomitant]
     Indication: DRUG USE FOR UNKNOWN INDICATION
  9. FLECAINIDE ACETATE [Concomitant]
     Indication: DRUG USE FOR UNKNOWN INDICATION
  10. INFLUENZA VACCINE [Concomitant]
     Indication: DRUG USE FOR UNKNOWN INDICATION
  11. KEPPRA [Concomitant]
  12. OMEPRAZOLE [Concomitant]
  13. POTASSIUM CHLORIDE [Concomitant]
     Indication: DRUG USE FOR UNKNOWN INDICATION
  14. PROVENTIL [Concomitant]
     Indication: DRUG USE FOR UNKNOWN INDICATION
  15. PROVERA [Concomitant]
     Indication: DRUG USE FOR UNKNOWN INDICATION
  16. SINGULAIR [Concomitant]
     Indication: DRUG USE FOR UNKNOWN INDICATION
  17. SPIRIVA [Concomitant]
     Indication: DRUG USE FOR UNKNOWN INDICATION
  18. WARFARIN SODIUM [Concomitant]
     Indication: DRUG USE FOR UNKNOWN INDICATION
  19. ZYRTEC [Concomitant]
     Indication: DRUG USE FOR UNKNOWN INDICATION
  20. PROTONIX [Concomitant]
     Indication: DRUG USE FOR UNKNOWN INDICATION

REACTIONS (1)
  - CONVULSION [None]
